FAERS Safety Report 16352146 (Version 1)
Quarter: 2019Q2

REPORT INFORMATION
  Report Type: Spontaneous
  Country: GB (occurrence: GB)
  Receive Date: 20190524
  Receipt Date: 20190524
  Transmission Date: 20190711
  Serious: Yes (Hospitalization, Other)
  Sender: FDA-Public Use
  Company Number: GB-AUROBINDO-AUR-APL-2019-029089

PATIENT

DRUGS (5)
  1. GABAPENTIN. [Suspect]
     Active Substance: GABAPENTIN
     Dosage: 1200 MILLIGRAM, DAILY
     Route: 048
  2. DIAZEPAM. [Suspect]
     Active Substance: DIAZEPAM
     Indication: ANXIETY
     Dosage: UNKNOWN
     Route: 065
     Dates: start: 20190409
  3. GABAPENTIN. [Suspect]
     Active Substance: GABAPENTIN
     Indication: ARTHRALGIA
     Dosage: 900 MILLIGRAM, DAILY
     Route: 048
  4. MIRTAZAPINE. [Suspect]
     Active Substance: MIRTAZAPINE
     Indication: DEPRESSION
     Dosage: 30 MILLIGRAM, DAILY
     Route: 048
  5. TRAMADOL. [Suspect]
     Active Substance: TRAMADOL
     Indication: ARTHRALGIA
     Dosage: UP TO 800MG DAILY
     Route: 048
     Dates: end: 20180415

REACTIONS (6)
  - Amnesia [Unknown]
  - Abnormal behaviour [Unknown]
  - Drug ineffective [Unknown]
  - Insomnia [Unknown]
  - Mood altered [Unknown]
  - Psychotic disorder [Recovering/Resolving]
